FAERS Safety Report 18127214 (Version 3)
Quarter: 2020Q4

REPORT INFORMATION
  Report Type: Report from Study
  Country: None (occurrence: DE)
  Receive Date: 20200810
  Receipt Date: 20201002
  Transmission Date: 20210113
  Serious: Yes (Hospitalization, Other)
  Sender: FDA-Public Use
  Company Number: DE-ABBVIE-20K-062-3515852-00

PATIENT
  Age: 46 Year
  Sex: Male
  Weight: 84 kg

DRUGS (8)
  1. EMTRICITABINE [Concomitant]
     Active Substance: EMTRICITABINE
     Indication: HIV INFECTION
  2. IBUPROFEN. [Suspect]
     Active Substance: IBUPROFEN
     Indication: PRODUCT USED FOR UNKNOWN INDICATION
     Route: 065
  3. LEVETIRACETAM. [Suspect]
     Active Substance: LEVETIRACETAM
     Indication: PRODUCT USED FOR UNKNOWN INDICATION
     Route: 065
  4. PANTOPRAZOLE [Concomitant]
     Active Substance: PANTOPRAZOLE
     Indication: PRODUCT USED FOR UNKNOWN INDICATION
     Dates: end: 20191219
  5. VIEKIRAX [Suspect]
     Active Substance: OMBITASVIR\PARITAPREVIR\RITONAVIR
     Indication: CHRONIC HEPATITIS C
     Dosage: OMBITASVIR 12.5MG/PARITAPREVIR 75 MG/RITONAVIR 50 MG, 2 TABLETS ONCE DAILY
     Route: 048
     Dates: start: 20150407, end: 20150629
  6. EXVIERA [Suspect]
     Active Substance: DASABUVIR
     Indication: CHRONIC HEPATITIS C
     Route: 048
     Dates: start: 20150407, end: 20150629
  7. TENOFOVIR [Concomitant]
     Active Substance: TENOFOVIR
     Indication: HIV INFECTION
  8. DOLUTEGRAVIR [Concomitant]
     Active Substance: DOLUTEGRAVIR
     Indication: HIV INFECTION

REACTIONS (53)
  - Back pain [Unknown]
  - White blood cell count increased [Recovered/Resolved]
  - Troponin increased [Unknown]
  - Dyslipidaemia [Unknown]
  - Haematoma [Unknown]
  - Chest pain [Unknown]
  - Mobility decreased [Unknown]
  - Blood creatine phosphokinase increased [Unknown]
  - T-lymphocyte count decreased [Unknown]
  - Inflammatory marker increased [Unknown]
  - Campylobacter gastroenteritis [Recovered/Resolved]
  - Hypoxia [Unknown]
  - Asthenia [Unknown]
  - Haemoglobin decreased [Unknown]
  - Mean cell haemoglobin concentration increased [Recovered/Resolved]
  - Alanine aminotransferase increased [Recovered/Resolved]
  - T-lymphocyte count increased [Unknown]
  - Rhabdomyolysis [Unknown]
  - Arthralgia [Unknown]
  - Pelvic pain [Unknown]
  - C-reactive protein increased [Unknown]
  - Gamma-glutamyltransferase increased [Unknown]
  - Cardiovascular disorder [Unknown]
  - Mood altered [Unknown]
  - Dizziness [Unknown]
  - Blood potassium decreased [Unknown]
  - Gastrooesophageal reflux disease [Unknown]
  - Depression [Unknown]
  - Fall [Unknown]
  - Acute myocardial infarction [Unknown]
  - Epilepsy [Recovered/Resolved]
  - Upper limb fracture [Recovered/Resolved]
  - Upper respiratory tract infection [Unknown]
  - Cochlea implant [Unknown]
  - Medical device site pain [Unknown]
  - Dry skin [Unknown]
  - CD8 lymphocytes increased [Unknown]
  - Blood uric acid increased [Unknown]
  - Feeling abnormal [Unknown]
  - Acute kidney injury [Unknown]
  - Cerebral toxoplasmosis [Unknown]
  - Confusional state [Unknown]
  - Skin exfoliation [Unknown]
  - Crying [Unknown]
  - Haematocrit decreased [Unknown]
  - Seizure [Unknown]
  - Acute myocardial infarction [Recovered/Resolved]
  - Red blood cell count decreased [Unknown]
  - Blood glucose increased [Recovered/Resolved]
  - Blood creatinine increased [Recovered/Resolved]
  - CD4 lymphocytes decreased [Unknown]
  - Unevaluable event [Unknown]
  - Cognitive disorder [Unknown]

NARRATIVE: CASE EVENT DATE: 2017
